FAERS Safety Report 4359153-6 (Version None)
Quarter: 2004Q2

REPORT INFORMATION
  Report Type: 
  Country: None (occurrence: None)
  Receive Date: 20040512
  Receipt Date: 20040426
  Transmission Date: 20050107
  Serious: Yes (Other)
  Sender: FDA-Public Use
  Company Number: US_0404102616

PATIENT
  Age: 76 Year
  Sex: Male
  Weight: 70 kg

DRUGS (17)
  1. HUMALOG [Suspect]
     Indication: DIABETES MELLITUS
     Dosage: 16 U DAY
     Dates: start: 19990101
  2. HUMULIN R [Suspect]
     Indication: DIABETES MELLITUS
     Dates: end: 19990101
  3. HUMULIN N [Suspect]
     Indication: DIABETES MELLITUS
     Dates: start: 19820101, end: 20020101
  4. INSULIN [Suspect]
     Indication: DIABETES MELLITUS
  5. INSULIN [Suspect]
     Indication: DIABETES MELLITUS
  6. LANTUS [Concomitant]
  7. PLENDIL [Concomitant]
  8. CARDURA [Concomitant]
  9. ISOSORBIDE DINITRATE [Concomitant]
  10. CALCIUM [Concomitant]
  11. IRON SULFATETHIAMIN COMPOUND TAB [Concomitant]
  12. SODIUM BICARBONATE [Concomitant]
  13. ASPIRIN [Concomitant]
  14. PLAVIX [Concomitant]
  15. VITAMIN B-12 [Concomitant]
  16. EPOGEN [Concomitant]
  17. LASIX [Concomitant]

REACTIONS (5)
  - BLOOD GLUCOSE INCREASED [None]
  - BODY HEIGHT DECREASED [None]
  - CEREBROVASCULAR ACCIDENT [None]
  - HYPERTENSION [None]
  - RENAL FAILURE [None]
